FAERS Safety Report 15423216 (Version 1)
Quarter: 2018Q3

REPORT INFORMATION
  Report Type: Spontaneous
  Country: GB (occurrence: GB)
  Receive Date: 20180925
  Receipt Date: 20180925
  Transmission Date: 20181010
  Serious: Yes (Other)
  Sender: FDA-Public Use
  Company Number: GB-STRIDES ARCOLAB LIMITED-2018SP008071

PATIENT

DRUGS (27)
  1. THIOTEPA. [Suspect]
     Active Substance: THIOTEPA
     Indication: CORD BLOOD TRANSPLANT THERAPY
     Dosage: 15 MG/KG, UNKNOWN
     Route: 065
  2. METHYLPREDNISOLONE. [Suspect]
     Active Substance: METHYLPREDNISOLONE
     Dosage: 2.5 MG DIALY
     Route: 065
     Dates: start: 201504
  3. METHYLPREDNISOLONE. [Suspect]
     Active Substance: METHYLPREDNISOLONE
     Dosage: 2.5 MG, ON ALTERNATE DAYS
     Route: 065
     Dates: start: 201506, end: 201510
  4. ALEMTUZUMAB [Suspect]
     Active Substance: ALEMTUZUMAB
     Indication: CORD BLOOD TRANSPLANT THERAPY
     Dosage: 1 MG/KG, UNKNOWN
     Route: 065
  5. METHYLPREDNISOLONE. [Suspect]
     Active Substance: METHYLPREDNISOLONE
     Dosage: 0.5 MG/KG, UNKNOWN, ON DAY PLUS 59, DAY 107
     Route: 065
  6. MYCOPHENOLATE MOFETIL. [Suspect]
     Active Substance: MYCOPHENOLATE MOFETIL
     Indication: PROPHYLAXIS AGAINST GRAFT VERSUS HOST DISEASE
     Dosage: UNK
     Route: 065
  7. METHYLPREDNISOLONE. [Suspect]
     Active Substance: METHYLPREDNISOLONE
     Dosage: 1 MG/KG, ON DAY PLUS  52, DAY 77, DAY 94
     Route: 065
  8. METHYLPREDNISOLONE. [Suspect]
     Active Substance: METHYLPREDNISOLONE
     Dosage: 0.25 MG/KG, UNKNOWN, OM DAY PLUS 111
     Route: 065
  9. METHYLPREDNISOLONE. [Suspect]
     Active Substance: METHYLPREDNISOLONE
     Dosage: 2 MG/KG, UNK, 10 MONTHS POST TRANSPLANT
     Route: 065
     Dates: start: 20140904
  10. PREDNISOLONE. [Suspect]
     Active Substance: PREDNISOLONE
     Indication: PROPHYLAXIS AGAINST GRAFT VERSUS HOST DISEASE
     Dosage: UNK
     Route: 065
     Dates: end: 201509
  11. METHYLPREDNISOLONE. [Suspect]
     Active Substance: METHYLPREDNISOLONE
     Dosage: 0.125 MG/KG, UNK, ON DAY PLUS 121
     Route: 065
  12. TREOSULFAN [Suspect]
     Active Substance: TREOSULFAN
     Indication: CORD BLOOD TRANSPLANT THERAPY
     Dosage: 36 G/M^2, UNK
     Route: 065
  13. FLUDARABINE [Suspect]
     Active Substance: FLUDARABINE PHOSPHATE
     Indication: CORD BLOOD TRANSPLANT THERAPY
     Dosage: 150 MG/M2, UNKNOWN
     Route: 065
  14. METHYLPREDNISOLONE. [Suspect]
     Active Substance: METHYLPREDNISOLONE
     Indication: PNEUMONITIS
     Dosage: 5 MG, UNKNOWN, POST TRANSPLANT DAY 0
     Route: 065
     Dates: start: 20131023
  15. METHYLPREDNISOLONE. [Suspect]
     Active Substance: METHYLPREDNISOLONE
     Dosage: 0.75 MG/KG, UNKNOWN, ON DAY PLUS 101
     Route: 065
  16. METHYLPREDNISOLONE. [Suspect]
     Active Substance: METHYLPREDNISOLONE
     Dosage: 1.5 MG/KG, UNKNOWN, ON DAY PLUS 29,  DAY  40
     Route: 065
  17. METHYLPREDNISOLONE. [Suspect]
     Active Substance: METHYLPREDNISOLONE
     Dosage: 0.125 MG/KG, UNK, ON DAY PLUS 125 ON ALTERNATE DAYS
     Route: 065
  18. METHYLPREDNISOLONE. [Suspect]
     Active Substance: METHYLPREDNISOLONE
     Dosage: 1.5 MG/KG, UNK
     Route: 065
     Dates: start: 20141031
  19. METHYLPREDNISOLONE. [Suspect]
     Active Substance: METHYLPREDNISOLONE
     Dosage: 5/2.5 MG ON ALTERNATE DAYS
     Route: 065
     Dates: start: 201502
  20. INFLIXIMAB [Suspect]
     Active Substance: INFLIXIMAB
     Indication: ADENOVIRUS INFECTION
     Dosage: UNK
     Route: 065
  21. CIDOFOVIR. [Suspect]
     Active Substance: CIDOFOVIR
     Indication: ADENOVIRUS INFECTION
     Dosage: UNK
     Route: 065
  22. TACROLIMUS. [Suspect]
     Active Substance: TACROLIMUS
     Indication: PROPHYLAXIS AGAINST GRAFT VERSUS HOST DISEASE
     Dosage: UNK
     Route: 065
  23. METHYLPREDNISOLONE. [Suspect]
     Active Substance: METHYLPREDNISOLONE
     Dosage: 2.5 MG, UNKNOWN, ON DAY PLUS 3
     Route: 065
  24. METHYLPREDNISOLONE. [Suspect]
     Active Substance: METHYLPREDNISOLONE
     Dosage: 1.5 MG/KG, UNK
     Route: 065
     Dates: start: 20140918
  25. METHYLPREDNISOLONE. [Suspect]
     Active Substance: METHYLPREDNISOLONE
     Dosage: 0.5 MG/KG, UNKNOWN
     Route: 065
     Dates: start: 201410
  26. METHYLPREDNISOLONE. [Suspect]
     Active Substance: METHYLPREDNISOLONE
     Dosage: 7.5/5 MG, ON ALTERNATE DAYS
     Route: 065
     Dates: start: 201501
  27. METHYLPREDNISOLONE. [Suspect]
     Active Substance: METHYLPREDNISOLONE
     Dosage: 2 MG/KG, UNKNOWN, ON DAY PLUS 26, DAY 31, DAY 75, DAY 85
     Route: 065

REACTIONS (3)
  - Off label use [Unknown]
  - Immune thrombocytopenic purpura [Unknown]
  - Thrombotic microangiopathy [Unknown]
